FAERS Safety Report 11324209 (Version 7)
Quarter: 2015Q3

REPORT INFORMATION
  Report Type: Report from Study
  Country: CA (occurrence: CA)
  Receive Date: 20150730
  Receipt Date: 20150915
  Transmission Date: 20151125
  Serious: Yes (Hospitalization)
  Sender: FDA-Public Use
  Company Number: CA-ABBVIE-15K-028-1434329-00

PATIENT
  Age: 63 Year
  Sex: Female

DRUGS (1)
  1. HUMIRA [Suspect]
     Active Substance: ADALIMUMAB
     Indication: CROHN^S DISEASE
     Route: 058
     Dates: start: 20141022

REACTIONS (17)
  - Impaired healing [Unknown]
  - Dyspepsia [Not Recovered/Not Resolved]
  - Incision site infection [Recovered/Resolved]
  - Crohn^s disease [Unknown]
  - Incision site erythema [Unknown]
  - Local swelling [Unknown]
  - Abscess intestinal [Unknown]
  - Abdominal pain [Not Recovered/Not Resolved]
  - Pain [Unknown]
  - Hypophagia [Not Recovered/Not Resolved]
  - Crohn^s disease [Unknown]
  - Gastrointestinal inflammation [Unknown]
  - Pain [Unknown]
  - Intestinal obstruction [Unknown]
  - Hypersensitivity [Unknown]
  - Pyrexia [Unknown]
  - Incision site pain [Unknown]

NARRATIVE: CASE EVENT DATE: 2015
